FAERS Safety Report 24410967 (Version 1)
Quarter: 2024Q4

REPORT INFORMATION
  Report Type: Spontaneous
  Country: US (occurrence: US)
  Receive Date: 20241008
  Receipt Date: 20241008
  Transmission Date: 20250114
  Serious: Yes (Death, Hospitalization)
  Sender: MYLAN
  Company Number: US-MYLANLABS-2024M1091173

PATIENT
  Age: 65 Year
  Sex: Male

DRUGS (9)
  1. PREDNISONE [Suspect]
     Active Substance: PREDNISONE
     Indication: Immunosuppressant drug therapy
     Dosage: UNK, HIGH DOSE
     Route: 065
  2. METHOTREXATE [Suspect]
     Active Substance: METHOTREXATE
     Indication: Immunosuppressant drug therapy
     Dosage: UNK
     Route: 065
  3. LACTULOSE [Suspect]
     Active Substance: LACTULOSE
     Indication: Hyperammonaemia
     Dosage: UNK
     Route: 065
  4. RIFAMPIN [Suspect]
     Active Substance: RIFAMPIN
     Indication: Hyperammonaemia
     Dosage: UNK
     Route: 065
  5. ADALIMUMAB [Suspect]
     Active Substance: ADALIMUMAB
     Indication: Immunosuppressant drug therapy
     Dosage: UNK
     Route: 065
  6. ADALIMUMAB [Suspect]
     Active Substance: ADALIMUMAB
     Indication: Ankylosing spondylitis
  7. RIFAXIMIN [Suspect]
     Active Substance: RIFAXIMIN
     Indication: Hyperammonaemia
     Dosage: UNK
     Route: 065
  8. SODIUM BENZOATE [Suspect]
     Active Substance: SODIUM BENZOATE
     Indication: Hyperammonaemia
     Dosage: UNK
     Route: 065
  9. SODIUM PHENYLACETATE [Suspect]
     Active Substance: SODIUM PHENYLACETATE
     Indication: Hyperammonaemia
     Dosage: UNK
     Route: 065

REACTIONS (6)
  - Hyperammonaemia [Fatal]
  - Hyperammonaemic encephalopathy [Fatal]
  - Status epilepticus [Fatal]
  - Respiratory alkalosis [Fatal]
  - Drug ineffective for unapproved indication [Fatal]
  - Off label use [Unknown]
